FAERS Safety Report 5958329-1 (Version None)
Quarter: 2008Q4

REPORT INFORMATION
  Report Type: 
  Country: None (occurrence: None)
  Receive Date: 20081117
  Receipt Date: 20081117
  Transmission Date: 20090506
  Serious: Yes (Other)
  Sender: FDA-Public Use
  Company Number: None

PATIENT
  Sex: Female
  Weight: 72.5755 kg

DRUGS (1)
  1. AMBIEN CR [Suspect]
     Indication: INSOMNIA
     Dosage: 12.5 MG 1 AT BEDTIME
     Dates: start: 20060323, end: 20081115

REACTIONS (2)
  - DEPRESSED LEVEL OF CONSCIOUSNESS [None]
  - VICTIM OF SEXUAL ABUSE [None]
